FAERS Safety Report 5839938-7 (Version None)
Quarter: 2008Q3

REPORT INFORMATION
  Report Type: 
  Country: None (occurrence: None)
  Receive Date: 20080811
  Receipt Date: 20080805
  Transmission Date: 20090109
  Serious: Yes (Hospitalization)
  Sender: FDA-Public Use
  Company Number: US-JNJFOC-20070106833

PATIENT
  Sex: Female
  Weight: 126.1 kg

DRUGS (2)
  1. ORTHO EVRA [Suspect]
     Indication: MENOMETRORRHAGIA
     Route: 062
  2. IRON [Concomitant]

REACTIONS (3)
  - FIBRIN D DIMER INCREASED [None]
  - MUSCLE STRAIN [None]
  - OFF LABEL USE [None]
